FAERS Safety Report 5429798-0 (Version None)
Quarter: 2007Q3

REPORT INFORMATION
  Report Type: 
  Country: None (occurrence: None)
  Receive Date: 20070829
  Receipt Date: 20070822
  Transmission Date: 20080115
  Serious: Yes (Other)
  Sender: FDA-Public Use
  Company Number: JP-PFIZER INC-2007064158

PATIENT
  Age: 38 Year
  Sex: Male
  Weight: 74 kg

DRUGS (3)
  1. ZYRTEC [Suspect]
     Indication: DERMATITIS ATOPIC
     Dosage: DAILY DOSE:10MG
     Route: 048
     Dates: start: 20070703, end: 20070730
  2. SUPLATAST TOSILATE [Concomitant]
     Route: 048
  3. MEQUITAZINE [Concomitant]
     Route: 048

REACTIONS (4)
  - DEPRESSIVE SYMPTOM [None]
  - HALLUCINATION [None]
  - IRRITABILITY [None]
  - SUICIDAL IDEATION [None]
